FAERS Safety Report 8224849-2 (Version None)
Quarter: 2012Q1

REPORT INFORMATION
  Report Type: 
  Country: None (occurrence: None)
  Receive Date: 20120321
  Receipt Date: 20120315
  Transmission Date: 20120608
  Serious: Yes (Death)
  Sender: FDA-Public Use
  Company Number: FR-ROCHE-1050427

PATIENT
  Age: 80 Year
  Sex: Female

DRUGS (1)
  1. XOLAIR [Suspect]
     Indication: TRANSFUSION
     Dosage: SOLUTION IN SYRINGE FOR 6 WEEKS
     Dates: start: 20100101

REACTIONS (1)
  - LEUKAEMIA [None]
